FAERS Safety Report 18553026 (Version 2)
Quarter: 2021Q1

REPORT INFORMATION
  Report Type: Spontaneous
  Country: US (occurrence: US)
  Receive Date: 20201127
  Receipt Date: 20210215
  Transmission Date: 20210419
  Serious: No
  Sender: FDA-Public Use
  Company Number: US-GW PHARMA-202011USGW04036

PATIENT

DRUGS (7)
  1. EPIDIOLEX [Suspect]
     Active Substance: CANNABIDIOL
     Indication: LENNOX-GASTAUT SYNDROME
     Dosage: 10 MILLIGRAM/KILOGRAM, QD
     Route: 048
     Dates: start: 2019
  2. CLOBAZAM. [Suspect]
     Active Substance: CLOBAZAM
     Dosage: 20 MILLIGRAM, BID (20 MG QAM, 20 MG QPM OVER FEW WEEKS), DOSE DECREASED
     Route: 065
     Dates: start: 2020
  3. LEVETIRACETAM. [Concomitant]
     Active Substance: LEVETIRACETAM
     Indication: SEIZURE
     Dosage: 2500 MILLIGRAM, QD (1000 MG QAM, 1500 MG QPM)
     Route: 065
     Dates: start: 201908
  4. EPIDIOLEX [Suspect]
     Active Substance: CANNABIDIOL
     Indication: TUBEROUS SCLEROSIS COMPLEX
     Dosage: DOSE INCREASED TO UNKNOWN DOSE
     Route: 065
  5. CLOBAZAM. [Suspect]
     Active Substance: CLOBAZAM
     Indication: SEIZURE
     Dosage: 30 MILLIGRAM, BID
     Route: 065
     Dates: start: 201908, end: 2020
  6. LAMOTRIGINE. [Concomitant]
     Active Substance: LAMOTRIGINE
     Indication: SEIZURE
     Dosage: 300 MILLIGRAM, BID
     Route: 065
     Dates: start: 201908
  7. EPIDIOLEX [Suspect]
     Active Substance: CANNABIDIOL
     Dosage: 20 MG, BID
     Route: 065

REACTIONS (3)
  - Disorganised speech [Recovering/Resolving]
  - Abnormal behaviour [Recovering/Resolving]
  - Pressure of speech [Recovering/Resolving]

NARRATIVE: CASE EVENT DATE: 2019
